FAERS Safety Report 9635687 (Version 1)
Quarter: 2013Q4

REPORT INFORMATION
  Report Type: Spontaneous
  Country: BR (occurrence: BR)
  Receive Date: 20131021
  Receipt Date: 20131021
  Transmission Date: 20140711
  Serious: Yes (Hospitalization)
  Sender: FDA-Public Use
  Company Number: BR-GLAXOSMITHKLINE-A1046134A

PATIENT
  Age: 6 Year
  Sex: Male
  Weight: 24 kg

DRUGS (3)
  1. AEROLIN [Suspect]
     Indication: RHINITIS ALLERGIC
     Dosage: 3DROP PER DAY
     Dates: start: 20131001, end: 20131014
  2. PREDSIM [Concomitant]
  3. HYDROXYZINE HYDROCHLORIDE [Concomitant]

REACTIONS (8)
  - Accidental overdose [Recovered/Resolved]
  - Arrhythmia [Recovered/Resolved]
  - Erythema [Recovered/Resolved]
  - Vomiting [Recovered/Resolved]
  - Tremor [Recovered/Resolved]
  - Drug administration error [Unknown]
  - Drug ineffective [Unknown]
  - Fatigue [Not Recovered/Not Resolved]
